FAERS Safety Report 12196719 (Version 2)
Quarter: 2016Q2

REPORT INFORMATION
  Report Type: Spontaneous
  Country: US (occurrence: US)
  Receive Date: 20160321
  Receipt Date: 20160412
  Transmission Date: 20160815
  Serious: Yes (Hospitalization, Other)
  Sender: FDA-Public Use
  Company Number: US-MDT-ADR-2016-00357

PATIENT
  Age: 59 Year
  Sex: Male

DRUGS (4)
  1. BUPIVACAINE. [Suspect]
     Active Substance: BUPIVACAINE
     Dosage: 9.002MG/DAY
     Route: 037
  2. CLONIDINE. [Suspect]
     Active Substance: CLONIDINE
     Dosage: 150.04MCG/DAY
     Route: 037
  3. FENTANYL. [Suspect]
     Active Substance: FENTANYL
     Dosage: 120.03MCG/DAY
     Route: 037
  4. BACLOFEN. [Suspect]
     Active Substance: BACLOFEN
     Dosage: 600.1MCG/DAY
     Route: 037

REACTIONS (11)
  - Pain in extremity [Unknown]
  - Hyperhidrosis [Unknown]
  - Tinnitus [Unknown]
  - Emotional distress [Unknown]
  - Diarrhoea [Unknown]
  - Underdose [Unknown]
  - Malaise [Unknown]
  - Pain [Unknown]
  - Drug withdrawal syndrome [Unknown]
  - Vomiting [Unknown]
  - Sleep disorder [Unknown]
